FAERS Safety Report 11314171 (Version 1)
Quarter: 2015Q3

REPORT INFORMATION
  Report Type: Spontaneous
  Country: US (occurrence: US)
  Receive Date: 20150727
  Receipt Date: 20150727
  Transmission Date: 20151125
  Serious: No
  Sender: FDA-Public Use
  Company Number: US-GILEAD-2015-0165106

PATIENT
  Sex: Male

DRUGS (1)
  1. HARVONI [Suspect]
     Active Substance: LEDIPASVIR\SOFOSBUVIR
     Indication: PRODUCT USED FOR UNKNOWN INDICATION
     Dosage: UNK
     Route: 065
     Dates: start: 20150331, end: 20150622

REACTIONS (5)
  - Back pain [Unknown]
  - Musculoskeletal discomfort [Unknown]
  - Memory impairment [Recovering/Resolving]
  - Hypoaesthesia [Unknown]
  - Insomnia [Unknown]
